FAERS Safety Report 9170805 (Version 1)
Quarter: 2013Q1

REPORT INFORMATION
  Report Type: Spontaneous
  Country: US (occurrence: None)
  Receive Date: 20130315
  Receipt Date: 20130315
  Transmission Date: 20140127
  Serious: No
  Sender: FDA-Public Use
  Company Number: None

PATIENT
  Age: 70 Year
  Sex: Female
  Weight: 53.34 kg

DRUGS (6)
  1. LENALIDOMIDE [Suspect]
     Indication: CHRONIC LYMPHOCYTIC LEUKAEMIA
     Route: 048
     Dates: start: 20120125, end: 20120529
  2. LEVOTHYROXINE [Concomitant]
  3. LEVOTHYROXINE [Concomitant]
  4. NAPROXEN SODIUM [Concomitant]
  5. VITAMIN A-VITAMIN C-VITAMIN E-MINERALS [Concomitant]
  6. LENALIDOMIDE [Concomitant]

REACTIONS (2)
  - Pain in extremity [None]
  - Deep vein thrombosis [None]
